FAERS Safety Report 22157071 (Version 1)
Quarter: 2023Q1

REPORT INFORMATION
  Report Type: Spontaneous
  Country: US (occurrence: None)
  Receive Date: 20230330
  Receipt Date: 20230330
  Transmission Date: 20230417
  Serious: No
  Sender: FDA-Public Use
  Company Number: US-Merck Healthcare KGaA-9392266

PATIENT
  Sex: Male

DRUGS (1)
  1. REBIF [Suspect]
     Active Substance: INTERFERON BETA-1A
     Indication: Multiple sclerosis
     Dosage: 22UG/0.5 ML PREFILLED SYRINGE
     Route: 058
     Dates: start: 20221123

REACTIONS (3)
  - Multiple sclerosis relapse [Unknown]
  - Muscle spasms [Unknown]
  - Drug ineffective [Unknown]
